FAERS Safety Report 5771508-1 (Version None)
Quarter: 2008Q2

REPORT INFORMATION
  Report Type: 
  Country: None (occurrence: None)
  Receive Date: 20080612
  Receipt Date: 20080612
  Transmission Date: 20081010
  Serious: Yes (Other)
  Sender: FDA-Public Use
  Company Number: None

PATIENT
  Sex: Female
  Weight: 49.8957 kg

DRUGS (1)
  1. NUVARING [Suspect]
     Indication: CONTRACEPTION
     Dosage: 1 RING  LESS THAN 3 WEEKS VAG/LESS THAN 3 WEEKS
     Route: 067
     Dates: start: 20080510, end: 20080529

REACTIONS (12)
  - ANGER [None]
  - ASTHENIA [None]
  - CHEST PAIN [None]
  - CRYING [None]
  - DISTURBANCE IN ATTENTION [None]
  - DIZZINESS [None]
  - DYSPNOEA [None]
  - FATIGUE [None]
  - FEELING ABNORMAL [None]
  - MOOD ALTERED [None]
  - NERVOUSNESS [None]
  - PLEURISY [None]
